FAERS Safety Report 8531605-4 (Version None)
Quarter: 2012Q3

REPORT INFORMATION
  Report Type: 
  Country: None (occurrence: None)
  Receive Date: 20120723
  Receipt Date: 20120719
  Transmission Date: 20120928
  Serious: Yes (Other)
  Sender: FDA-Public Use
  Company Number: PHHY2012BR062213

PATIENT
  Age: 67 Year
  Sex: Female

DRUGS (1)
  1. EXELON [Suspect]
     Indication: DEMENTIA ALZHEIMER'S TYPE
     Dosage: 4.6 MG/24 HOURS
     Route: 062
     Dates: start: 20120712, end: 20120718

REACTIONS (5)
  - PIGMENTATION DISORDER [None]
  - ERYTHEMA [None]
  - SWELLING FACE [None]
  - RASH GENERALISED [None]
  - HYPERSENSITIVITY [None]
